FAERS Safety Report 7248473-3 (Version None)
Quarter: 2011Q1

REPORT INFORMATION
  Report Type: 
  Country: None (occurrence: None)
  Receive Date: 20110127
  Receipt Date: 20110121
  Transmission Date: 20110831
  Serious: Yes (Other)
  Sender: FDA-Public Use
  Company Number: US-TYCO HEALTHCARE/MALLINCKRODT-T201100102

PATIENT
  Sex: Male

DRUGS (1)
  1. EXALGO [Suspect]
     Dosage: UNK

REACTIONS (1)
  - LIVER DISORDER [None]
